FAERS Safety Report 7603705-4 (Version None)
Quarter: 2011Q3

REPORT INFORMATION
  Report Type: 
  Country: None (occurrence: None)
  Receive Date: 20110712
  Receipt Date: 20110708
  Transmission Date: 20111222
  Serious: Yes (Other)
  Sender: FDA-Public Use
  Company Number: US-ROXANE LABORATORIES, INC.-2011-RO-00962RO

PATIENT
  Age: 23 Year
  Sex: Male

DRUGS (6)
  1. CYCLOSPORINE [Suspect]
     Indication: RENAL TRANSPLANT
     Dosage: 300 MG
  2. PREDNISONE [Suspect]
     Dosage: 10 MG
  3. VALGANCICLOVIR [Suspect]
     Indication: ANTIVIRAL PROPHYLAXIS
     Dosage: 900 MG
  4. MYCOPHENOLATE MEFETIL [Suspect]
     Indication: RENAL TRANSPLANT
     Dosage: 2 G
  5. CYCLOSPORINE [Suspect]
  6. PREDNISONE [Suspect]
     Indication: RENAL TRANSPLANT
     Dosage: 12.5 MG

REACTIONS (8)
  - DEHYDRATION [None]
  - BLOOD CREATININE INCREASED [None]
  - LEUKOPENIA [None]
  - MOUTH ULCERATION [None]
  - TOXICITY TO VARIOUS AGENTS [None]
  - GINGIVAL HYPERTROPHY [None]
  - GINGIVAL PAIN [None]
  - ODYNOPHAGIA [None]
